FAERS Safety Report 9357994 (Version 5)
Quarter: 2013Q4

REPORT INFORMATION
  Report Type: Spontaneous
  Country: US (occurrence: US)
  Receive Date: 20130620
  Receipt Date: 20131211
  Transmission Date: 20140711
  Serious: Yes (Hospitalization, Other)
  Sender: FDA-Public Use
  Company Number: US-009507513-1306USA006658

PATIENT
  Sex: Female
  Weight: 64.4 kg

DRUGS (8)
  1. FOSAMAX [Suspect]
     Indication: OSTEOPOROSIS
     Dosage: 70 MG, QD
     Route: 048
  2. FOSAMAX [Suspect]
     Dosage: 70 MG, QW
     Route: 048
     Dates: start: 20011023, end: 20011101
  3. FOSAMAX [Suspect]
     Dosage: 70 MG, UNK
     Route: 048
     Dates: start: 20021012, end: 20070927
  4. FOSAMAX [Suspect]
     Dosage: 70 MG, QW
     Route: 048
     Dates: start: 20070215
  5. FOSAMAX [Suspect]
     Dosage: 70 MG, QW
     Route: 048
     Dates: start: 20080315
  6. ALENDRONATE SODIUM [Suspect]
     Dosage: 70 MG, UNK
     Route: 048
     Dates: start: 20080315, end: 20110908
  7. CALCIUM (UNSPECIFIED) [Concomitant]
     Indication: OSTEOPOROSIS
  8. VITAMIN D (UNSPECIFIED) [Concomitant]
     Indication: OSTEOPOROSIS

REACTIONS (45)
  - Foot operation [Unknown]
  - Breast prosthesis implantation [Unknown]
  - Osteonecrosis of jaw [Unknown]
  - Gingival bleeding [Unknown]
  - Oral infection [Unknown]
  - Temporomandibular joint syndrome [Unknown]
  - VIIth nerve paralysis [Unknown]
  - Herpes zoster [Unknown]
  - Hypertension [Unknown]
  - Blood cholesterol increased [Unknown]
  - Dental caries [Unknown]
  - Tooth disorder [Unknown]
  - Tooth fracture [Unknown]
  - Tooth fracture [Unknown]
  - Endodontic procedure [Unknown]
  - Endodontic procedure [Unknown]
  - Herpes zoster [Unknown]
  - Arthritis [Unknown]
  - Osteopenia [Unknown]
  - Arthritis [Unknown]
  - Breast pain [Unknown]
  - Osteoarthritis [Unknown]
  - Joint effusion [Unknown]
  - Temporomandibular joint syndrome [Unknown]
  - Chest pain [Unknown]
  - Bronchitis [Unknown]
  - Tooth fracture [Unknown]
  - Temporomandibular joint syndrome [Unknown]
  - Deformity [Unknown]
  - Diverticulum intestinal [Unknown]
  - Colon adenoma [Unknown]
  - Benign breast lump removal [Unknown]
  - Herpes dermatitis [Unknown]
  - Aortic valve sclerosis [Unknown]
  - Aortic valve incompetence [Unknown]
  - Cardiac stress test [Unknown]
  - Local swelling [Unknown]
  - Scan myocardial perfusion [Unknown]
  - Ligament sprain [Unknown]
  - Inappropriate schedule of drug administration [Unknown]
  - Pain in extremity [Unknown]
  - Muscle spasms [Unknown]
  - Gastrooesophageal reflux disease [Unknown]
  - Gastric ulcer [Unknown]
  - Arthralgia [Unknown]
